FAERS Safety Report 4849697-2 (Version None)
Quarter: 2005Q4

REPORT INFORMATION
  Report Type: 
  Country: None (occurrence: None)
  Receive Date: 20051207
  Receipt Date: 20051203
  Transmission Date: 20060501
  Serious: Yes (Other)
  Sender: FDA-Public Use
  Company Number: 217593

PATIENT
  Sex: Female

DRUGS (1)
  1. AVASTIN [Suspect]
     Indication: COLORECTAL CANCER METASTATIC
     Dosage: Q2W, INTRAVENOUS
     Route: 042
     Dates: start: 20050501

REACTIONS (2)
  - BLINDNESS TRANSIENT [None]
  - BLINDNESS UNILATERAL [None]
